FAERS Safety Report 13672713 (Version 1)
Quarter: 2017Q2

REPORT INFORMATION
  Report Type: Spontaneous
  Country: US (occurrence: US)
  Receive Date: 20170621
  Receipt Date: 20170621
  Transmission Date: 20170830
  Serious: No
  Sender: FDA-Public Use
  Company Number: US-CROWN LABORATORIES, INC.-2022326

PATIENT
  Age: 79 Year
  Sex: Male

DRUGS (1)
  1. ALA QUIN [Suspect]
     Active Substance: CLIOQUINOL\HYDROCORTISONE
     Indication: TINEA CRURIS
     Route: 061
     Dates: start: 20170513, end: 20170523

REACTIONS (5)
  - Condition aggravated [Recovering/Resolving]
  - Rash erythematous [None]
  - Inflammation [None]
  - Pain [None]
  - Pruritus [None]

NARRATIVE: CASE EVENT DATE: 20170513
